FAERS Safety Report 5161202-2 (Version None)
Quarter: 2006Q4

REPORT INFORMATION
  Report Type: 
  Country: None (occurrence: None)
  Receive Date: 20061130
  Receipt Date: 20060815
  Transmission Date: 20070319
  Serious: No
  Sender: FDA-Public Use
  Company Number: US-BRISTOL-MYERS SQUIBB COMPANY-13475876

PATIENT

DRUGS (2)
  1. ERBITUX [Suspect]
     Route: 042
     Dates: start: 20060814, end: 20060814
  2. OXYCODONE HCL [Concomitant]

REACTIONS (1)
  - HEADACHE [None]
